FAERS Safety Report 13370081 (Version 1)
Quarter: 2017Q1

REPORT INFORMATION
  Report Type: Spontaneous
  Country: IN (occurrence: IN)
  Receive Date: 20170324
  Receipt Date: 20170324
  Transmission Date: 20170429
  Serious: Yes (Other)
  Sender: FDA-Public Use
  Company Number: IN-MYLANLABS-2017M1018294

PATIENT

DRUGS (1)
  1. CISPLATIN. [Suspect]
     Active Substance: CISPLATIN
     Indication: SQUAMOUS CELL CARCINOMA
     Dosage: 40MG/M2 WEEKLY
     Route: 065
     Dates: end: 201305

REACTIONS (2)
  - Squamous cell carcinoma of the oral cavity [Unknown]
  - Skin cancer [Unknown]

NARRATIVE: CASE EVENT DATE: 2016
